FAERS Safety Report 12020243 (Version 3)
Quarter: 2016Q2

REPORT INFORMATION
  Report Type: Spontaneous
  Country: NO (occurrence: NO)
  Receive Date: 20160206
  Receipt Date: 20160411
  Transmission Date: 20160815
  Serious: Yes (Life-Threatening)
  Sender: FDA-Public Use
  Company Number: NO-ACCORD-037376

PATIENT
  Age: 59 Year
  Sex: Male
  Weight: 86.8 kg

DRUGS (6)
  1. PREDNISOLON [Suspect]
     Active Substance: PREDNISOLONE
     Indication: RHEUMATOID ARTHRITIS
     Dates: start: 201402
  2. SIMVASTATIN. [Concomitant]
     Active Substance: SIMVASTATIN
  3. FOLIC ACID. [Concomitant]
     Active Substance: FOLIC ACID
  4. METHOTREXATE [Suspect]
     Active Substance: METHOTREXATE
     Indication: RHEUMATOID ARTHRITIS
     Dosage: TOOK 20 MG PER WEEK FROM FEB-2014 TO DEC-2014 AND FROM DEC-2014 TO DEC-2015: 10 MG PER WEEK
     Dates: start: 201402
  5. CIMZIA [Suspect]
     Active Substance: CERTOLIZUMAB PEGOL
     Indication: RHEUMATOID ARTHRITIS
     Route: 051
     Dates: start: 201412, end: 201512
  6. LOSARTAN. [Concomitant]
     Active Substance: LOSARTAN

REACTIONS (2)
  - Adenocarcinoma of colon [Recovering/Resolving]
  - Large intestine polyp [Recovering/Resolving]

NARRATIVE: CASE EVENT DATE: 20151217
